FAERS Safety Report 11132268 (Version 1)
Quarter: 2015Q2

REPORT INFORMATION
  Report Type: Spontaneous
  Country: TW (occurrence: TW)
  Receive Date: 20150522
  Receipt Date: 20150522
  Transmission Date: 20150821
  Serious: Yes (Death, Hospitalization, Other)
  Sender: FDA-Public Use
  Company Number: PHHY2015TW060474

PATIENT
  Age: 48 Year
  Sex: Male

DRUGS (2)
  1. METHOTREXATE [Suspect]
     Active Substance: METHOTREXATE
     Indication: PSORIASIS
     Dosage: 7.5 MG, UNK, EVERY WEEK
     Route: 065
  2. METHOTREXATE [Suspect]
     Active Substance: METHOTREXATE
     Dosage: 10 MG, UNK, WEEKLY
     Route: 065

REACTIONS (18)
  - Hypophagia [Unknown]
  - Renal impairment [Unknown]
  - Shock [Unknown]
  - Urine output decreased [Unknown]
  - Tachycardia [Unknown]
  - Leukopenia [Recovered/Resolved]
  - Hypoalbuminaemia [Unknown]
  - Pruritus [Unknown]
  - Erythema [Unknown]
  - Toxicity to various agents [Recovered/Resolved]
  - Ventricular tachycardia [Fatal]
  - Febrile neutropenia [Unknown]
  - Diarrhoea [Unknown]
  - Anaemia [Unknown]
  - Myocardial infarction [Unknown]
  - Respiratory distress [Unknown]
  - Pancytopenia [Unknown]
  - Mouth ulceration [Unknown]
